FAERS Safety Report 7940449-3 (Version None)
Quarter: 2011Q4

REPORT INFORMATION
  Report Type: 
  Country: None (occurrence: None)
  Receive Date: 20111108
  Receipt Date: 20110602
  Transmission Date: 20120403
  Serious: Yes (Other)
  Sender: FDA-Public Use
  Company Number: PHHY2011US52508

PATIENT
  Age: 69 Year
  Sex: Female

DRUGS (16)
  1. METOPROLOL TARTRATE [Concomitant]
  2. OXYCONTIN [Concomitant]
  3. ZOMETA [Suspect]
     Indication: METASTASES TO BONE
  4. PROTONIX [Concomitant]
  5. MIRALAX [Concomitant]
  6. PREMARIN [Concomitant]
  7. SUTENT [Concomitant]
  8. MULTIVITAMINS (ASCORBIC ACID, ERGOCALCIFEROL, FOLIC ACID, NICOTINAMIDE [Concomitant]
  9. VITAMIN B6 [Concomitant]
  10. LISINOPRIL [Concomitant]
  11. ASCORBIC ACID [Concomitant]
  12. SENOKOT (SENNA ALEXANDRINA FRUIT) [Concomitant]
  13. HYDROCOD-HOM [Concomitant]
  14. CARDIZEM [Concomitant]
  15. CALCIUM WITH VITAMIN D (CALCIUM PHOSPHATE, CALCIUM SODIUM LACTATE, ERG [Concomitant]
  16. COUMADIN [Concomitant]

REACTIONS (8)
  - NEOPLASM MALIGNANT [None]
  - PLEURAL EFFUSION [None]
  - NEOPLASM PROGRESSION [None]
  - DYSPNOEA [None]
  - HEADACHE [None]
  - CHEST PAIN [None]
  - BREATH SOUNDS ABNORMAL [None]
  - METASTASES TO LUNG [None]
